FAERS Safety Report 7146390-0 (Version None)
Quarter: 2010Q4

REPORT INFORMATION
  Report Type: 
  Country: None (occurrence: None)
  Receive Date: 20101208
  Receipt Date: 20100413
  Transmission Date: 20110411
  Serious: No
  Sender: FDA-Public Use
  Company Number: US-BRISTOL-MYERS SQUIBB COMPANY-15060361

PATIENT
  Age: 66 Year
  Sex: Male
  Weight: 86 kg

DRUGS (5)
  1. PRAVACHOL [Suspect]
     Indication: BLOOD CHOLESTEROL INCREASED
  2. NEXIUM [Concomitant]
  3. BYSTOLIC [Concomitant]
  4. CLARITIN [Concomitant]
     Indication: HYPERSENSITIVITY
  5. CLARITIN [Concomitant]
     Indication: NASOPHARYNGITIS

REACTIONS (2)
  - MUSCLE SPASMS [None]
  - MYALGIA [None]
